FAERS Safety Report 9064667 (Version 1)
Quarter: 2013Q1

REPORT INFORMATION
  Report Type: Spontaneous
  Country: US (occurrence: US)
  Receive Date: 20130214
  Receipt Date: 20130214
  Transmission Date: 20140127
  Serious: Yes (Other)
  Sender: FDA-Public Use
  Company Number: US-AMGEN-USASP2013009065

PATIENT
  Sex: Female

DRUGS (1)
  1. PROLIA [Suspect]
     Indication: OSTEOPENIA
     Dosage: UNK UNK, Q6MO
     Dates: start: 201201

REACTIONS (6)
  - Spinal fracture [Unknown]
  - Spinal fusion acquired [Unknown]
  - Fractured coccyx [Unknown]
  - Rib fracture [Unknown]
  - Fall [Unknown]
  - Back pain [Not Recovered/Not Resolved]
